FAERS Safety Report 7089149-5 (Version None)
Quarter: 2010Q4

REPORT INFORMATION
  Report Type: 
  Country: None (occurrence: None)
  Receive Date: 20101108
  Receipt Date: 20080130
  Transmission Date: 20110411
  Serious: Yes (Death)
  Sender: FDA-Public Use
  Company Number: PHHY2008AR37236

PATIENT
  Sex: Male

DRUGS (4)
  1. CLOZAPINE [Suspect]
     Dosage: UNK
     Dates: start: 20000321
  2. BROMPERIDOL [Concomitant]
  3. AKINETON [Concomitant]
  4. ROHYPNOL [Concomitant]

REACTIONS (1)
  - DEATH [None]
